FAERS Safety Report 18632565 (Version 2)
Quarter: 2021Q1

REPORT INFORMATION
  Report Type: Report from Study
  Country: CA (occurrence: CA)
  Receive Date: 20201218
  Receipt Date: 20210212
  Transmission Date: 20210419
  Serious: Yes (Other)
  Sender: FDA-Public Use
  Company Number: PHHY2019CA131598

PATIENT
  Sex: Female

DRUGS (2)
  1. INDOMETHACIN. [Concomitant]
     Active Substance: INDOMETHACIN
     Indication: PRODUCT USED FOR UNKNOWN INDICATION
     Dosage: UNK
     Route: 065
     Dates: start: 201703
  2. COSENTYX [Suspect]
     Active Substance: SECUKINUMAB
     Indication: ANKYLOSING SPONDYLITIS
     Dosage: 150 MG, QMO
     Route: 058
     Dates: start: 20190219

REACTIONS (11)
  - Gait disturbance [Unknown]
  - Back pain [Unknown]
  - Arthralgia [Unknown]
  - Neck pain [Unknown]
  - Discomfort [Unknown]
  - Mobility decreased [Unknown]
  - Pain [Recovering/Resolving]
  - Fatigue [Unknown]
  - Ankylosing spondylitis [Unknown]
  - Joint swelling [Unknown]
  - Musculoskeletal stiffness [Unknown]
